FAERS Safety Report 16360015 (Version 1)
Quarter: 2019Q2

REPORT INFORMATION
  Report Type: Other
  Country: BE (occurrence: BE)
  Receive Date: 20190528
  Receipt Date: 20190528
  Transmission Date: 20190711
  Serious: Yes (Hospitalization)
  Sender: FDA-Public Use
  Company Number: BE-CELLTRION INC.-2019BE021237

PATIENT

DRUGS (6)
  1. TRASTUZUMAB (UNKNOWN) [Suspect]
     Active Substance: TRASTUZUMAB
     Indication: BREAST CANCER
     Route: 065
  2. PERTUZUMAB. [Suspect]
     Active Substance: PERTUZUMAB
     Indication: BREAST CANCER
     Route: 065
  3. EUTHYROX [Concomitant]
     Active Substance: LEVOTHYROXINE SODIUM
     Indication: HYPOTHYROIDISM
     Dosage: 10 UG
     Route: 048
  4. SOTALEX [Concomitant]
     Active Substance: SOTALOL
     Indication: CORONARY ARTERY DISEASE
     Dosage: 160 MG, DAILY
     Route: 048
  5. COVERAM [Concomitant]
     Active Substance: AMLODIPINE\PERINDOPRIL
     Indication: HYPERTENSION
     Dosage: 5MG/5MG, QD
     Route: 048
     Dates: start: 20101015
  6. ASAFLOW [Concomitant]
     Active Substance: ASPIRIN
     Dosage: 80 MG, DAILY
     Route: 048
     Dates: start: 20101220

REACTIONS (1)
  - Intestinal obstruction [Recovering/Resolving]

NARRATIVE: CASE EVENT DATE: 20190430
